FAERS Safety Report 18884465 (Version 1)
Quarter: 2021Q1

REPORT INFORMATION
  Report Type: Spontaneous
  Country: US (occurrence: US)
  Receive Date: 20210212
  Receipt Date: 20210212
  Transmission Date: 20210420
  Serious: Yes (Other)
  Sender: FDA-Public Use
  Company Number: US-BIOVITRUM-2021US1396

PATIENT
  Sex: Male
  Weight: 9.7 kg

DRUGS (3)
  1. EPINEPHRINE HCL [Concomitant]
     Active Substance: EPINEPHRINE
  2. POLY?VI?SOL [Concomitant]
     Active Substance: VITAMINS
     Dosage: 250?50/ML DROPS
  3. SYNAGIS [Suspect]
     Active Substance: PALIVIZUMAB
     Indication: ANTIVIRAL PROPHYLAXIS
     Route: 030
     Dates: start: 202011

REACTIONS (1)
  - COVID-19 [Recovered/Resolved]
